FAERS Safety Report 25155372 (Version 1)
Quarter: 2025Q2

REPORT INFORMATION
  Report Type: Other
  Country: CA (occurrence: CA)
  Receive Date: 20250403
  Receipt Date: 20250403
  Transmission Date: 20250717
  Serious: No
  Sender: TOLMAR
  Company Number: CA-20250312-467a4a

PATIENT
  Age: 71 Year
  Sex: Male

DRUGS (2)
  1. ELIGARD [Suspect]
     Active Substance: LEUPROLIDE ACETATE
     Indication: Prostate cancer
     Dosage: 22.5 MG,EVERY 3 MONTHS
     Route: 058
     Dates: start: 20240305
  2. ELIGARD [Suspect]
     Active Substance: LEUPROLIDE ACETATE
     Dosage: 22.5 MG,EVERY 3 MONTHS
     Route: 058
     Dates: start: 20250312

REACTIONS (3)
  - Influenza [Unknown]
  - Inappropriate schedule of product administration [Recovered/Resolved]
  - Malaise [Unknown]

NARRATIVE: CASE EVENT DATE: 20250312
